FAERS Safety Report 8119143-4 (Version None)
Quarter: 2012Q1

REPORT INFORMATION
  Report Type: 
  Country: None (occurrence: None)
  Receive Date: 20120207
  Receipt Date: 20120207
  Transmission Date: 20120608
  Serious: Yes (Other)
  Sender: FDA-Public Use
  Company Number: None

PATIENT
  Age: 59 Year
  Sex: Male
  Weight: 104.32 kg

DRUGS (1)
  1. SYNVISC-ONE [Suspect]
     Indication: OSTEOARTHRITIS

REACTIONS (2)
  - LOSS OF CONSCIOUSNESS [None]
  - DERMATITIS ACNEIFORM [None]
